FAERS Safety Report 8701687 (Version 2)
Quarter: 2013Q4

REPORT INFORMATION
  Report Type: Spontaneous
  Country: JP (occurrence: JP)
  Receive Date: 20120803
  Receipt Date: 20131105
  Transmission Date: 20140711
  Serious: Yes (Other)
  Sender: FDA-Public Use
  Company Number: JP-MSD-1207JPN013118

PATIENT
  Age: 75 Year
  Sex: Female

DRUGS (1)
  1. FOSAMAC TABLETS 35MG [Suspect]
     Indication: OSTEOPOROSIS
     Dosage: 35 MG, QW
     Route: 048

REACTIONS (2)
  - Sequestrectomy [Recovering/Resolving]
  - Osteonecrosis of jaw [Recovering/Resolving]
